FAERS Safety Report 4975753-4 (Version None)
Quarter: 2006Q2

REPORT INFORMATION
  Report Type: 
  Country: None (occurrence: None)
  Receive Date: 20060418
  Receipt Date: 20050708
  Transmission Date: 20061013
  Serious: Yes (Other)
  Sender: FDA-Public Use
  Company Number: GB-NOVOPROD-245250

PATIENT
  Age: 64 Year
  Sex: Female
  Weight: 66 kg

DRUGS (5)
  1. VAGIFEM [Suspect]
     Indication: ILL-DEFINED DISORDER
     Dosage: 1 APPL. TWICE A WEEK
     Route: 067
     Dates: start: 20050425, end: 20050501
  2. ATORVASTATIN CALCIUM [Concomitant]
     Dosage: 10 MG, QD
     Dates: start: 20030101
  3. LANZOPRAZOL [Concomitant]
     Dosage: 30 MG, QD
     Dates: start: 20040101
  4. ATENOLOL [Concomitant]
     Dosage: 50 MG, QD
     Dates: start: 20020101
  5. CO-PROXAMOL [Concomitant]
     Dosage: UNK, PRN
     Dates: start: 20010101

REACTIONS (2)
  - CHEST DISCOMFORT [None]
  - WHEEZING [None]
